FAERS Safety Report 25347972 (Version 1)
Quarter: 2025Q2

REPORT INFORMATION
  Report Type: Report from Study
  Country: CA (occurrence: CA)
  Receive Date: 20250522
  Receipt Date: 20250522
  Transmission Date: 20250717
  Serious: Yes (Other)
  Sender: ABBVIE
  Company Number: CA-ABBVIE-6289219

PATIENT
  Sex: Female
  Weight: 109 kg

DRUGS (2)
  1. SKYRIZI [Suspect]
     Active Substance: RISANKIZUMAB-RZAA
     Indication: Psoriasis
     Route: 058
  2. SKYRIZI [Suspect]
     Active Substance: RISANKIZUMAB-RZAA
     Indication: Crohn^s disease

REACTIONS (6)
  - Bartholin^s abscess [Unknown]
  - Abdominal pain [Unknown]
  - Diarrhoea [Unknown]
  - Intestinal anastomosis [Unknown]
  - Arthralgia [Unknown]
  - Fistula discharge [Unknown]
